FAERS Safety Report 4928254-3 (Version None)
Quarter: 2006Q1

REPORT INFORMATION
  Report Type: 
  Country: None (occurrence: None)
  Receive Date: 20060228
  Receipt Date: 20050721
  Transmission Date: 20060701
  Serious: Yes (Death, Other)
  Sender: FDA-Public Use
  Company Number: US-MERCK-0507USA03290

PATIENT
  Age: 61 Year
  Sex: Male
  Weight: 128 kg

DRUGS (4)
  1. VIOXX [Suspect]
     Indication: OSTEOARTHRITIS
     Route: 048
     Dates: start: 20010122
  2. VIOXX [Suspect]
     Route: 048
     Dates: start: 20010219
  3. VIOXX [Suspect]
     Route: 048
     Dates: start: 20010122
  4. VIOXX [Suspect]
     Route: 048
     Dates: start: 20010219

REACTIONS (3)
  - ARTERIOSCLEROSIS [None]
  - HYPERTENSIVE HEART DISEASE [None]
  - MYOCARDIAL INFARCTION [None]
